FAERS Safety Report 7314651-8 (Version None)
Quarter: 2011Q1

REPORT INFORMATION
  Report Type: 
  Country: None (occurrence: None)
  Receive Date: 20110225
  Receipt Date: 20110124
  Transmission Date: 20110831
  Serious: No
  Sender: FDA-Public Use
  Company Number: US-MYLANLABS-2010S1019886

PATIENT
  Age: 34 Year
  Sex: Male

DRUGS (1)
  1. AMNESTEEM [Suspect]
     Indication: ACNE CYSTIC
     Route: 048
     Dates: start: 20101022, end: 20101025

REACTIONS (5)
  - GOUT [None]
  - HEADACHE [None]
  - DRY EYE [None]
  - BLOOD URIC ACID INCREASED [None]
  - EYE PAIN [None]
